FAERS Safety Report 7607690-0 (Version None)
Quarter: 2011Q3

REPORT INFORMATION
  Report Type: 
  Country: None (occurrence: None)
  Receive Date: 20110713
  Receipt Date: 20110517
  Transmission Date: 20111222
  Serious: Yes (Other)
  Sender: FDA-Public Use
  Company Number: PHHY2011DE43414

PATIENT
  Sex: Male

DRUGS (4)
  1. SANDOSTATIN LAR [Suspect]
  2. TAMBOCOR [Concomitant]
     Indication: ARRHYTHMIA
     Dosage: 1.5 DF UNK
     Route: 048
  3. MICARDIS [Concomitant]
     Indication: BLOOD PRESSURE FLUCTUATION
     Dosage: 80 MG, 1 X 1
     Route: 048
  4. SYMBICORT [Concomitant]

REACTIONS (5)
  - ABDOMINAL PAIN UPPER [None]
  - DYSPNOEA [None]
  - FLATULENCE [None]
  - ABDOMINAL PAIN [None]
  - NAUSEA [None]
